FAERS Safety Report 15519888 (Version 2)
Quarter: 2021Q2

REPORT INFORMATION
  Report Type: Spontaneous
  Country: US (occurrence: US)
  Receive Date: 20181017
  Receipt Date: 20210412
  Transmission Date: 20210716
  Serious: Yes (Other)
  Sender: FDA-Public Use
  Company Number: US-PFIZER INC-2018422328

PATIENT
  Age: 78 Year
  Sex: Male

DRUGS (3)
  1. LYRICA [Suspect]
     Active Substance: PREGABALIN
     Indication: HYPOAESTHESIA
  2. LYRICA [Suspect]
     Active Substance: PREGABALIN
     Indication: DIZZINESS
     Dosage: 75 MG, 2X/DAY, (1 CAP BY MOUTH TWO TIMES A DAY FOR 90 DAYS)
     Route: 048
  3. LYRICA [Suspect]
     Active Substance: PREGABALIN
     Indication: HEADACHE
     Dosage: UNK

REACTIONS (3)
  - Drug dependence [Unknown]
  - Off label use [Unknown]
  - Drug effective for unapproved indication [Unknown]
